FAERS Safety Report 5215634-4 (Version None)
Quarter: 2007Q1

REPORT INFORMATION
  Report Type: 
  Country: None (occurrence: None)
  Receive Date: 20070123
  Receipt Date: 20070117
  Transmission Date: 20070707
  Serious: Yes (Other)
  Sender: FDA-Public Use
  Company Number: PHNU2007DE00585

PATIENT
  Sex: Male

DRUGS (4)
  1. SANDIMMUNE [Suspect]
     Indication: LIVER TRANSPLANT
     Dosage: 150 MG, BID
     Dates: start: 20070101, end: 20070116
  2. SANDIMMUNE [Suspect]
     Dosage: 75 MG, QD
     Dates: start: 20070117, end: 20070117
  3. CELLCEPT [Concomitant]
     Indication: LIVER TRANSPLANT
     Dosage: 1000MG/DAY
     Route: 042
  4. URBASON [Concomitant]
     Dosage: 500 MG/DAY
     Dates: start: 20070116

REACTIONS (5)
  - DRUG DOSE OMISSION [None]
  - DRUG LEVEL DECREASED [None]
  - LIVER TRANSPLANT REJECTION [None]
  - PERITONITIS [None]
  - SMALL INTESTINAL PERFORATION [None]
